FAERS Safety Report 18318141 (Version 9)
Quarter: 2024Q1

REPORT INFORMATION
  Report Type: Spontaneous
  Country: US (occurrence: US)
  Receive Date: 20200928
  Receipt Date: 20240122
  Transmission Date: 20240410
  Serious: No
  Sender: FDA-Public Use
  Company Number: US-PFIZER INC-2020369726

PATIENT
  Age: 61 Year
  Sex: Female
  Weight: 71 kg

DRUGS (7)
  1. IBRANCE [Suspect]
     Active Substance: PALBOCICLIB
     Indication: Breast cancer female
     Dosage: QD (ONCE A DAY) X 21 DAYS Q 28
     Route: 048
     Dates: start: 20200829, end: 2020
  2. IBRANCE [Suspect]
     Active Substance: PALBOCICLIB
     Indication: Breast cancer stage IV
     Dosage: QD (ONCE A DAY) X 21 DAYS
     Dates: start: 2020, end: 2020
  3. IBRANCE [Suspect]
     Active Substance: PALBOCICLIB
     Dosage: 1 DAILY FOR 21 DAYS
     Route: 048
     Dates: start: 20201031
  4. IBRANCE [Suspect]
     Active Substance: PALBOCICLIB
     Dosage: 75 MG, CYCLIC
     Dates: start: 20200828
  5. LETROZOLE [Concomitant]
     Active Substance: LETROZOLE
     Dosage: UNK
  6. BETASERON [Concomitant]
     Active Substance: INTERFERON BETA-1B
     Dosage: UNK
  7. VITAMIN D NOS [Concomitant]
     Active Substance: VITAMIN D NOS

REACTIONS (2)
  - White blood cell count decreased [Recovering/Resolving]
  - Neutrophil count decreased [Recovering/Resolving]

NARRATIVE: CASE EVENT DATE: 20201214
